FAERS Safety Report 4950526-7 (Version None)
Quarter: 2006Q1

REPORT INFORMATION
  Report Type: 
  Country: None (occurrence: None)
  Receive Date: 20060322
  Receipt Date: 20060320
  Transmission Date: 20060701
  Serious: Yes (Hospitalization)
  Sender: FDA-Public Use
  Company Number: DE-GLAXOSMITHKLINE-D0049121A

PATIENT
  Age: 72 Year
  Sex: Female

DRUGS (4)
  1. QUILONUM RETARD [Suspect]
     Indication: DEPRESSION
     Dosage: 900MG PER DAY
     Route: 048
     Dates: end: 20050531
  2. SAROTEN [Suspect]
     Indication: DEPRESSION
     Route: 048
     Dates: end: 20050529
  3. ZYPREXA [Suspect]
     Indication: DEPRESSION
     Route: 048
  4. TAVOR [Concomitant]
     Indication: DEPRESSION
     Route: 048
     Dates: start: 20050524

REACTIONS (9)
  - DELIRIUM [None]
  - DELUSION [None]
  - DISORIENTATION [None]
  - DRUG EFFECT INCREASED [None]
  - DYSARTHRIA [None]
  - GAIT DISTURBANCE [None]
  - HALLUCINATION [None]
  - SUSPICIOUSNESS [None]
  - TREMOR [None]
